FAERS Safety Report 7305198-3 (Version None)
Quarter: 2011Q1

REPORT INFORMATION
  Report Type: 
  Country: None (occurrence: None)
  Receive Date: 20110222
  Receipt Date: 20110215
  Transmission Date: 20110831
  Serious: Yes (Other)
  Sender: FDA-Public Use
  Company Number: US-PFIZER INC-2009253212

PATIENT
  Sex: Female
  Weight: 68 kg

DRUGS (8)
  1. XANAX [Suspect]
     Indication: SMOKING CESSATION THERAPY
     Dosage: UNK MG, UNK
     Route: 048
     Dates: start: 20090801, end: 20100101
  2. NICOTINE [Concomitant]
     Dosage: UNK
  3. MULTIVITAMIN [Concomitant]
     Dosage: UNK
  4. FLUORIDE [Concomitant]
     Indication: TOOTH DISORDER
     Dosage: UNK
  5. ZYBAN [Concomitant]
  6. WELLBUTRIN [Concomitant]
  7. CELEXA [Concomitant]
  8. BUSPAR [Concomitant]
     Dosage: UNK
     Dates: end: 20090101

REACTIONS (15)
  - CATARACT [None]
  - DIZZINESS [None]
  - NICOTINE DEPENDENCE [None]
  - VIRILISM [None]
  - ARTERIAL DISORDER [None]
  - HAEMORRHAGE [None]
  - FEELING ABNORMAL [None]
  - OEDEMA PERIPHERAL [None]
  - MEDICATION ERROR [None]
  - PERIPHERAL VASCULAR DISORDER [None]
  - FALL [None]
  - NERVOUSNESS [None]
  - BURNING SENSATION [None]
  - DRUG EFFECT DECREASED [None]
  - JOINT INJURY [None]
